FAERS Safety Report 5396307-4 (Version None)
Quarter: 2007Q3

REPORT INFORMATION
  Report Type: 
  Country: None (occurrence: None)
  Receive Date: 20070725
  Receipt Date: 20070712
  Transmission Date: 20080115
  Serious: Yes (Other)
  Sender: FDA-Public Use
  Company Number: US-GILEAD-2007-0012665

PATIENT
  Sex: Male
  Weight: 87.622 kg

DRUGS (12)
  1. VIREAD [Suspect]
     Indication: HIV INFECTION
     Route: 048
     Dates: start: 20011018, end: 20060314
  2. VIREAD [Suspect]
     Route: 048
     Dates: start: 20000210, end: 20001017
  3. ZIAGEN [Concomitant]
  4. ATAZANAVIR SULFATE [Concomitant]
  5. FUZEON [Concomitant]
  6. LIPITOR [Concomitant]
  7. ZOVIRAX [Concomitant]
  8. TESTIM [Concomitant]
  9. BENADRYL [Concomitant]
  10. ATIVAN [Concomitant]
  11. AMBIEN [Concomitant]
  12. VIAGRA [Concomitant]

REACTIONS (1)
  - NEPHROPATHY TOXIC [None]
